FAERS Safety Report 4357211-3 (Version None)
Quarter: 2004Q2

REPORT INFORMATION
  Report Type: 
  Country: None (occurrence: None)
  Receive Date: 20040511
  Receipt Date: 20040511
  Transmission Date: 20050107
  Serious: Yes (Other)
  Sender: FDA-Public Use
  Company Number: None

PATIENT
  Sex: Female

DRUGS (1)
  1. DEPO-PROVERA [Suspect]

REACTIONS (31)
  - ANAEMIA [None]
  - ANXIETY [None]
  - ARTHRALGIA [None]
  - BREAST PAIN [None]
  - CHEST PAIN [None]
  - DIFFICULTY IN WALKING [None]
  - DISTURBANCE IN ATTENTION [None]
  - DIZZINESS [None]
  - DYSPHAGIA [None]
  - EAR PRURITUS [None]
  - FEELING ABNORMAL [None]
  - HAEMORRHAGE SUBCUTANEOUS [None]
  - HAIR GROWTH ABNORMAL [None]
  - HYPERAESTHESIA [None]
  - LOCAL SWELLING [None]
  - LYMPH NODE PAIN [None]
  - LYMPHADENOPATHY [None]
  - MALAISE [None]
  - MEMORY IMPAIRMENT [None]
  - MENORRHAGIA [None]
  - MIGRAINE [None]
  - OEDEMA PERIPHERAL [None]
  - PAIN IN EXTREMITY [None]
  - PAIN OF SKIN [None]
  - RESPIRATORY DISORDER [None]
  - SOMNOLENCE [None]
  - SWELLING FACE [None]
  - VEIN DISCOLOURATION [None]
  - WEIGHT FLUCTUATION [None]
  - WEIGHT INCREASED [None]
  - WEIGHT LOSS POOR [None]
